FAERS Safety Report 8521260-1 (Version None)
Quarter: 2012Q3

REPORT INFORMATION
  Report Type: 
  Country: None (occurrence: None)
  Receive Date: 20120719
  Receipt Date: 20120710
  Transmission Date: 20120928
  Serious: Yes (Death)
  Sender: FDA-Public Use
  Company Number: JP-EISAI INC-E7389-02688-CLI-JP

PATIENT
  Sex: Female
  Weight: 51 kg

DRUGS (11)
  1. FLAVITAN [Concomitant]
     Indication: KERATITIS
  2. HYALEIN [Concomitant]
     Indication: KERATITIS
  3. NORVASC [Concomitant]
     Indication: HYPERTENSION
     Route: 048
  4. HEPARIN SODIUM INJ [Concomitant]
     Indication: PROPHYLAXIS
     Route: 041
  5. LOXONIN [Concomitant]
     Indication: PAIN
     Route: 048
  6. HALAVEN [Suspect]
     Indication: BREAST CANCER RECURRENT
     Route: 041
     Dates: start: 20111209, end: 20120106
  7. HALAVEN [Suspect]
     Indication: METASTASES TO BONE
  8. FULCALIQ [Concomitant]
     Indication: PROPHYLAXIS
     Route: 041
  9. SEISHOKU [Concomitant]
     Indication: PROPHYLAXIS
     Route: 041
  10. KETOPROFEN [Concomitant]
     Indication: PAIN
  11. MUCOSTA [Concomitant]
     Indication: PROPHYLAXIS
     Route: 048

REACTIONS (1)
  - SEPSIS [None]
